FAERS Safety Report 9722831 (Version 2)
Quarter: 2013Q4

REPORT INFORMATION
  Report Type: Spontaneous
  Country: US (occurrence: None)
  Receive Date: 20131126
  Receipt Date: 20131223
  Transmission Date: 20140711
  Serious: Yes (Other)
  Sender: FDA-Public Use
  Company Number: AEGR000211

PATIENT
  Age: 59 Year
  Sex: Male
  Weight: 91.2 kg

DRUGS (27)
  1. JUXTAPID (LOMITAPIDE) CAPSULE, 10MG [Suspect]
     Indication: TYPE IIA HYPERLIPIDAEMIA
     Route: 048
     Dates: start: 201309
  2. BUSPIRONE HYDROCHLORIDE [Concomitant]
  3. METFORMIN HCL [Concomitant]
  4. CYCLOBENZAPRINE [Concomitant]
  5. TOPROL (METOPROLOL SUCCINATE) [Concomitant]
  6. LISINOPRIL [Concomitant]
  7. FOLIC ACID [Concomitant]
  8. ACIPHEX (RABEPRAZOLE SODIUM) [Concomitant]
  9. CLOPIDOGREL BISULFATE [Concomitant]
  10. LANTUS (INSULIN GLARGINE) [Concomitant]
  11. OMEGA 3 FISH OIL [Concomitant]
  12. PRAVASTATIN (PRAVASTATIN SODIUM) [Concomitant]
  13. ALBUTEROL (SALBUTAMOL) [Concomitant]
  14. SPIRIVA (TIOTROPIUM BROMIDE) [Concomitant]
  15. ZOLPIDEM (ZOLPIDEM TARTRATE) [Concomitant]
  16. ADVAIR (FLUTICASONE PROPIONATE, SALMETEROL XINAFOATE) [Concomitant]
  17. LORAZEPAM (LORAZEPAM) [Concomitant]
  18. NITROGLYCERIN (GLYCERYL TRINITRATE) [Concomitant]
  19. MULTIVITAMIN (VITAMINS NOS) [Concomitant]
  20. ASPIRIN (ACETYLSALICYLIC ACID) [Concomitant]
  21. MUCINEX [Concomitant]
  22. VITAMIN C (ASCORBIC ACID) [Concomitant]
  23. VITAMIN D3 (COLECALCIFEROL) [Concomitant]
  24. THIAMINE HYDROCHLORIDE [Concomitant]
  25. TYLENOL ARTHRITIS [Concomitant]
  26. ZETIA (EZETIMIBE) [Concomitant]
  27. TRICOR (FENOFIBRATE) [Concomitant]

REACTIONS (1)
  - Blindness unilateral [None]
